FAERS Safety Report 8906290 (Version 1)
Quarter: 2012Q4

REPORT INFORMATION
  Report Type: Spontaneous
  Country: US (occurrence: None)
  Receive Date: 20121112
  Receipt Date: 20121112
  Transmission Date: 20130627
  Serious: Yes (Other)
  Sender: FDA-Public Use
  Company Number: None

PATIENT
  Age: 53 Year
  Sex: Female
  Weight: 66.68 kg

DRUGS (1)
  1. NITROFURANTION MACROCRYSTALS [Suspect]
     Indication: PROPHYLAXIS URINARY TRACT INFECTION
     Dosage: 50mg 1 time per day po
     Route: 048
     Dates: start: 20111103, end: 20121104

REACTIONS (8)
  - Dizziness [None]
  - Pruritus [None]
  - Burning sensation [None]
  - Dyspnoea [None]
  - Headache [None]
  - Cardiac disorder [None]
  - Chest pain [None]
  - Migraine [None]
